FAERS Safety Report 5512527-X (Version None)
Quarter: 2007Q4

REPORT INFORMATION
  Report Type: 
  Country: None (occurrence: None)
  Receive Date: 20071112
  Receipt Date: 20070820
  Transmission Date: 20080405
  Serious: No
  Sender: FDA-Public Use
  Company Number: A0658224A

PATIENT
  Age: 54 Year
  Sex: Female
  Weight: 79.1 kg

DRUGS (6)
  1. AVANDAMET [Suspect]
     Dosage: 1TAB PER DAY
     Route: 048
     Dates: start: 20061201, end: 20070619
  2. TARKA [Concomitant]
  3. DIOVAN [Concomitant]
  4. VYTORIN [Concomitant]
  5. LAMISIL [Concomitant]
  6. ASPIRIN [Concomitant]

REACTIONS (3)
  - FLUID RETENTION [None]
  - OEDEMA [None]
  - WEIGHT INCREASED [None]
